FAERS Safety Report 4508490-0 (Version None)
Quarter: 2004Q4

REPORT INFORMATION
  Report Type: 
  Country: None (occurrence: None)
  Receive Date: 20041123
  Receipt Date: 20040303
  Transmission Date: 20050328
  Serious: No
  Sender: FDA-Public Use
  Company Number: US-GLAXOSMITHKLINE-A0501062A

PATIENT
  Sex: Female

DRUGS (5)
  1. WELLBUTRIN SR [Suspect]
     Indication: DEPRESSION
     Dosage: 150MG TWICE PER DAY
     Route: 048
     Dates: start: 20040223
  2. GLYBURIDE [Concomitant]
  3. AVANDIA [Concomitant]
  4. DIOVAN [Concomitant]
  5. SYNTHROID [Concomitant]

REACTIONS (1)
  - JOINT SWELLING [None]
